FAERS Safety Report 7034059-2 (Version None)
Quarter: 2010Q4

REPORT INFORMATION
  Report Type: 
  Country: None (occurrence: None)
  Receive Date: 20101006
  Receipt Date: 20100928
  Transmission Date: 20110411
  Serious: Yes (Death)
  Sender: FDA-Public Use
  Company Number: 2010EU005182

PATIENT
  Sex: Male

DRUGS (1)
  1. MYCAMINE [Suspect]
     Dosage: 100 MG, IV NOS
     Route: 042

REACTIONS (1)
  - DEATH [None]
